FAERS Safety Report 11608900 (Version 5)
Quarter: 2016Q1

REPORT INFORMATION
  Report Type: Report from Study
  Country: DE (occurrence: DE)
  Receive Date: 20151007
  Receipt Date: 20160212
  Transmission Date: 20160525
  Serious: No
  Sender: FDA-Public Use
  Company Number: DE-B.I. PHARMACEUTICALS,INC./RIDGEFIELD-2015-BI-54596DE

PATIENT
  Age: 63 Year
  Sex: Male
  Weight: 67.6 kg

DRUGS (2)
  1. VARGATEF [Suspect]
     Active Substance: NINTEDANIB
     Indication: LUNG ADENOCARCINOMA
     Dosage: 400 MG
     Route: 048
     Dates: start: 20150609
  2. DOCETAXEL. [Suspect]
     Active Substance: DOCETAXEL
     Indication: LUNG ADENOCARCINOMA
     Dosage: FORMULATION: LIQUID. DAILY DOSE: 35 MG/M2 BODY SURFACE AREA
     Route: 042
     Dates: start: 20150608

REACTIONS (2)
  - Leukopenia [Recovered/Resolved]
  - Decreased appetite [Unknown]

NARRATIVE: CASE EVENT DATE: 20150626
